FAERS Safety Report 13712855 (Version 1)
Quarter: 2017Q3

REPORT INFORMATION
  Report Type: Spontaneous
  Country: CN (occurrence: CN)
  Receive Date: 20170703
  Receipt Date: 20170703
  Transmission Date: 20171127
  Serious: Yes (Other)
  Sender: FDA-Public Use
  Company Number: CN-GILEAD-2017-0281503

PATIENT
  Age: 43 Year
  Sex: Male

DRUGS (1)
  1. ADEFOVIR DIPIVOXIL. [Suspect]
     Active Substance: ADEFOVIR DIPIVOXIL
     Indication: HEPATITIS B
     Dosage: 10 MG, QD
     Route: 048

REACTIONS (9)
  - Pain [Unknown]
  - Back pain [Unknown]
  - Bone density abnormal [Unknown]
  - Arthralgia [Unknown]
  - Osteonecrosis [Unknown]
  - Bladder disorder [Unknown]
  - Fanconi syndrome acquired [Unknown]
  - Joint effusion [Unknown]
  - Bone marrow oedema [Unknown]

NARRATIVE: CASE EVENT DATE: 2016
